FAERS Safety Report 16795825 (Version 2)
Quarter: 2019Q4

REPORT INFORMATION
  Report Type: Spontaneous
  Country: DE (occurrence: DE)
  Receive Date: 20190911
  Receipt Date: 20191106
  Transmission Date: 20200122
  Serious: Yes (Other)
  Sender: FDA-Public Use
  Company Number: DE-ASTRAZENECA-2019SF25633

PATIENT
  Sex: Female

DRUGS (1)
  1. BUFORI EASYHALER [Suspect]
     Active Substance: BUDESONIDE\FORMOTEROL FUMARATE
     Indication: ASTHMA
     Dosage: 160 MCG/120 DOSE, UNKNOWN UNKNOWN
     Route: 055

REACTIONS (7)
  - Asphyxia [Unknown]
  - Cough [Unknown]
  - Throat irritation [Unknown]
  - Product complaint [Unknown]
  - Product substitution issue [Unknown]
  - Anxiety [Unknown]
  - Product physical issue [Unknown]
